FAERS Safety Report 6759358-0 (Version None)
Quarter: 2010Q2

REPORT INFORMATION
  Report Type: 
  Country: None (occurrence: None)
  Receive Date: 20100607
  Receipt Date: 20100526
  Transmission Date: 20101027
  Serious: Yes (Death)
  Sender: FDA-Public Use
  Company Number: GB-ELI_LILLY_AND_COMPANY-GB200909000803

PATIENT
  Sex: Male
  Weight: 80 kg

DRUGS (3)
  1. PROZAC [Suspect]
     Indication: DEPRESSION
     Dosage: 20 MG, UNK
     Dates: start: 20090101, end: 20090101
  2. PROZAC [Suspect]
     Dosage: 40 MG, EACH MORNING
     Dates: start: 20090101
  3. ETHANOL [Concomitant]

REACTIONS (1)
  - COMPLETED SUICIDE [None]
